FAERS Safety Report 9929967 (Version 3)
Quarter: 2014Q2

REPORT INFORMATION
  Report Type: Spontaneous
  Country: US (occurrence: US)
  Receive Date: 20140227
  Receipt Date: 20140424
  Transmission Date: 20141212
  Serious: Yes (Other)
  Sender: FDA-Public Use
  Company Number: CHPA2014US003043

PATIENT
  Age: 85 Year
  Sex: Female

DRUGS (3)
  1. BUCKLEY^S COUGH MIXTURE [Suspect]
     Dosage: UNK
     Route: 065
  2. BUCKLEY^S COLD + SINUS DAY LIQUID GELS [Suspect]
     Indication: NASOPHARYNGITIS
     Dosage: 2 DF, QD
  3. BUCKLEY^S COLD + SINUS NIGHT LIQUID GELS [Suspect]
     Indication: NASOPHARYNGITIS
     Dosage: 2 DF, QD
     Route: 065

REACTIONS (3)
  - Bronchitis [Not Recovered/Not Resolved]
  - Incorrect drug administration duration [Unknown]
  - Drug ineffective [Unknown]
